FAERS Safety Report 9104855 (Version 1)
Quarter: 2013Q1

REPORT INFORMATION
  Report Type: Spontaneous
  Country: NO (occurrence: NO)
  Receive Date: 20130220
  Receipt Date: 20130220
  Transmission Date: 20140127
  Serious: Yes (Hospitalization)
  Sender: FDA-Public Use
  Company Number: NO-RB-050109-13

PATIENT
  Sex: Female

DRUGS (2)
  1. TEMGESIC [Suspect]
     Indication: PRODUCT USED FOR UNKNOWN INDICATION
     Dosage: DOSING DETAILS UNKNOWN
     Route: 065
  2. OXYNORM [Suspect]
     Indication: PRODUCT USED FOR UNKNOWN INDICATION
     Dosage: DOSING DETAILS UNKNOWN
     Route: 065

REACTIONS (2)
  - Adverse event [Unknown]
  - Hyperhidrosis [Unknown]
